FAERS Safety Report 6938370-2 (Version None)
Quarter: 2010Q3

REPORT INFORMATION
  Report Type: 
  Country: None (occurrence: None)
  Receive Date: 20100824
  Receipt Date: 20100811
  Transmission Date: 20110219
  Serious: Yes (Other)
  Sender: FDA-Public Use
  Company Number: BR-PFIZER INC-2010098349

PATIENT
  Age: 51 Year
  Sex: Female
  Weight: 77 kg

DRUGS (2)
  1. CHAMPIX [Suspect]
     Indication: SMOKING CESSATION THERAPY
     Dosage: UNK
     Route: 048
     Dates: start: 20100708, end: 20100101
  2. CHAMPIX [Suspect]
     Dosage: 1 MG, EVERY 12 HOURS
     Route: 048
     Dates: start: 20100101

REACTIONS (7)
  - AGGRESSION [None]
  - AGITATION [None]
  - ANXIETY [None]
  - DEPRESSION [None]
  - NERVOUSNESS [None]
  - WEIGHT INCREASED [None]
  - WITHDRAWAL SYNDROME [None]
